FAERS Safety Report 11986359 (Version 1)
Quarter: 2016Q1

REPORT INFORMATION
  Report Type: Spontaneous
  Country: US (occurrence: US)
  Receive Date: 20160202
  Receipt Date: 20160202
  Transmission Date: 20160526
  Serious: Yes (Other)
  Sender: FDA-Public Use
  Company Number: US-HOSPIRA-3150796

PATIENT
  Age: 64 Year
  Sex: Female

DRUGS (1)
  1. DEXTROSE. [Suspect]
     Active Substance: DEXTROSE
     Indication: MICROWAVE THERAPY

REACTIONS (1)
  - Hyponatraemia [Recovered/Resolved]
